FAERS Safety Report 8645351 (Version 2)
Quarter: 2012Q4

REPORT INFORMATION
  Report Type: 
  Country: US (occurrence: US)
  Receive Date: 20120702
  Receipt Date: 20120919
  Transmission Date: 20130627
  Serious: Yes (Death, Hospitalization)
  Sender: FDA-Public Use
  Company Number: US-PFIZER INC-2012154053

PATIENT
  Age: 78 Year
  Sex: Female
  Weight: 62.59 kg

DRUGS (12)
  1. REVATIO [Suspect]
     Indication: CHRONIC OBSTRUCTIVE PULMONARY DISEASE
     Dosage: 20 mg, 3x/day
     Route: 048
     Dates: start: 201112
  2. REVATIO [Suspect]
     Dosage: 30 mg
     Route: 048
     Dates: start: 201201
  3. ATENOLOL [Concomitant]
     Indication: BLOOD PRESSURE ABNORMAL
     Dosage: UNK
  4. PROCARDIA [Concomitant]
     Indication: BLOOD PRESSURE ABNORMAL
     Dosage: 30 mg, daily
     Route: 048
  5. GLIPIZIDE [Concomitant]
     Indication: DIABETES MELLITUS
     Dosage: 5 mg, 2x/day
  6. LASIX [Concomitant]
     Indication: FLUID RETENTION
     Dosage: 40 mg, daily
     Route: 048
  7. PRIMIDONE [Concomitant]
     Indication: TREMOR
     Dosage: 50 mg, daily
  8. PRAVACHOL [Concomitant]
     Indication: LIPID METABOLISM DISORDER
     Dosage: 40 mg, daily
  9. ZANTAC [Concomitant]
     Indication: DYSPEPSIA
     Dosage: 300 mg, daily
     Route: 048
  10. WARFARIN [Concomitant]
     Indication: ANTICOAGULANT THERAPY
     Dosage: 5 mg, daily
  11. ALBUTEROL SULFATE [Concomitant]
     Indication: CHRONIC OBSTRUCTIVE PULMONARY DISEASE
     Dosage: UNK, 4x/day
  12. DIGOXIN [Concomitant]
     Indication: CARDIAC FAILURE CONGESTIVE
     Dosage: 0.125 mg, daily

REACTIONS (3)
  - Cardiac disorder [Fatal]
  - Cardiac failure congestive [Fatal]
  - Chronic obstructive pulmonary disease [Unknown]
